FAERS Safety Report 8761192 (Version 1)
Quarter: 2012Q4

REPORT INFORMATION
  Report Type: 
  Country: US (occurrence: US)
  Receive Date: 20120830
  Receipt Date: 20120830
  Transmission Date: 20130627
  Serious: Yes (Other)
  Sender: FDA-Public Use
  Company Number: US-UCBSA-063805

PATIENT
  Sex: Male

DRUGS (1)
  1. CIMZIA [Suspect]
     Indication: RHEUMATOID ARTHRITIS
     Dosage: 6- 8 SHOTS OF CIMZIA, LOADING DOSES AT WEEK 0, 2 AND 4

REACTIONS (3)
  - Monoplegia [Unknown]
  - Neuropathy peripheral [Unknown]
  - Gastritis [Unknown]
